FAERS Safety Report 7588589-5 (Version None)
Quarter: 2011Q2

REPORT INFORMATION
  Report Type: 
  Country: None (occurrence: None)
  Receive Date: 20110627
  Receipt Date: 20110616
  Transmission Date: 20111010
  Serious: Yes (Hospitalization, Other)
  Sender: FDA-Public Use
  Company Number: 118648

PATIENT
  Age: 4 Year
  Sex: Male

DRUGS (1)
  1. METHOTREXATE [Suspect]
     Indication: ACUTE LYMPHOCYTIC LEUKAEMIA
     Dosage: 1G/M2; 120MG

REACTIONS (5)
  - PAIN IN EXTREMITY [None]
  - HYPERTONIA [None]
  - HEADACHE [None]
  - OVERDOSE [None]
  - MEDICATION ERROR [None]
